FAERS Safety Report 23447003 (Version 1)
Quarter: 2024Q1

REPORT INFORMATION
  Report Type: Spontaneous
  Country: CN (occurrence: CN)
  Receive Date: 20240126
  Receipt Date: 20240126
  Transmission Date: 20240409
  Serious: Yes (Other)
  Sender: FDA-Public Use
  Company Number: CN-AMGEN-CHNSP2024014001

PATIENT
  Age: 79 Year
  Sex: Male
  Weight: 75 kg

DRUGS (5)
  1. XGEVA [Suspect]
     Active Substance: DENOSUMAB
     Indication: Neoplasm malignant
     Dosage: 120 MILLIGRAM
     Route: 058
     Dates: start: 20240112, end: 20240112
  2. SINTILIMAB [Concomitant]
     Active Substance: SINTILIMAB
     Indication: Immunochemotherapy
     Dosage: 200 MILLIGRAM
  3. OXALIPLATIN [Concomitant]
     Active Substance: OXALIPLATIN
     Indication: Immunochemotherapy
     Dosage: 170 MILLIGRAM
  4. GIMERACIL\OTERACIL\TEGAFUR [Concomitant]
     Active Substance: GIMERACIL\OTERACIL POTASSIUM\TEGAFUR
     Indication: Immunochemotherapy
     Dosage: 40 MILLIGRAM
  5. ZOLEDRONIC ACID [Concomitant]
     Active Substance: ZOLEDRONIC ACID
     Indication: Metastases to bone
     Dosage: 4 MILLIGRAM, INTRAVENOUS DRIP
     Route: 042

REACTIONS (1)
  - Urticaria [Recovering/Resolving]

NARRATIVE: CASE EVENT DATE: 20240112
